FAERS Safety Report 15265976 (Version 1)
Quarter: 2018Q4

REPORT INFORMATION
  Report Type: Other
  Country: US (occurrence: US)
  Receive Date: 20180810
  Receipt Date: 20180810
  Transmission Date: 20190204
  Serious: No
  Sender: FDA-Public Use
  Company Number: US-NOSTRUM LABORATORIES, INC.-2053555

PATIENT
  Sex: Male

DRUGS (1)
  1. METFORMIN HYDROCHLORIDE EXTENDED-RELEASE [Suspect]
     Active Substance: METFORMIN HYDROCHLORIDE
     Indication: TYPE 2 DIABETES MELLITUS
     Route: 048

REACTIONS (2)
  - Dyspepsia [Recovered/Resolved]
  - Gastric disorder [Recovered/Resolved]
